FAERS Safety Report 11965388 (Version 1)
Quarter: 2016Q1

REPORT INFORMATION
  Report Type: Spontaneous
  Country: None (occurrence: None)
  Receive Date: 20160125
  Receipt Date: 20160125
  Transmission Date: 20160526
  Serious: No
  Sender: FDA-Public Use
  Company Number: None

PATIENT
  Age: 35 Year

DRUGS (3)
  1. ICY HOT BACK AND LARGE AREAS [Suspect]
     Active Substance: MENTHOL
     Indication: NECK PAIN
     Dates: start: 20160122, end: 20160122
  2. IBUPROFEN. [Concomitant]
     Active Substance: IBUPROFEN
  3. ICY HOT BACK AND LARGE AREAS [Suspect]
     Active Substance: MENTHOL
     Indication: BACK PAIN
     Dates: start: 20160122, end: 20160122

REACTIONS (3)
  - Application site scab [None]
  - Application site burn [None]
  - Product label confusion [None]

NARRATIVE: CASE EVENT DATE: 20160122
